FAERS Safety Report 17821247 (Version 1)
Quarter: 2020Q2

REPORT INFORMATION
  Report Type: Spontaneous
  Country: IT (occurrence: IT)
  Receive Date: 20200525
  Receipt Date: 20200525
  Transmission Date: 20200714
  Serious: Yes (Other)
  Sender: FDA-Public Use
  Company Number: IT-MACLEODS PHARMACEUTICALS US LTD-MAC2020026595

PATIENT

DRUGS (5)
  1. CITALOPRAM [Concomitant]
     Active Substance: CITALOPRAM HYDROBROMIDE
     Indication: PRODUCT USED FOR UNKNOWN INDICATION
     Dosage: 20 MILLIGRAM, QD
     Route: 065
     Dates: start: 199805, end: 200010
  2. DONEPEZIL. [Suspect]
     Active Substance: DONEPEZIL
     Indication: DEMENTIA ALZHEIMER^S TYPE
     Dosage: 5 MILLIGRAM, QD
     Route: 065
     Dates: start: 199805, end: 200010
  3. DONEPEZIL. [Suspect]
     Active Substance: DONEPEZIL
     Dosage: 10 MILLIGRAM, QD
     Route: 065
  4. DONEPEZIL. [Suspect]
     Active Substance: DONEPEZIL
     Dosage: 5 MILLIGRAM, QD
     Route: 065
  5. CLOTIAZEPAM [Concomitant]
     Active Substance: CLOTIAZEPAM
     Indication: PRODUCT USED FOR UNKNOWN INDICATION
     Dosage: 5 MILLIGRAM, QD
     Route: 065
     Dates: start: 199805, end: 200010

REACTIONS (1)
  - Pleurothotonus [Recovered/Resolved]
